FAERS Safety Report 6893585-7 (Version None)
Quarter: 2010Q3

REPORT INFORMATION
  Report Type: 
  Country: None (occurrence: None)
  Receive Date: 20100731
  Receipt Date: 20091020
  Transmission Date: 20110219
  Serious: No
  Sender: FDA-Public Use
  Company Number: US-PFIZER INC-2006020450

PATIENT
  Sex: Female
  Weight: 72.57 kg

DRUGS (22)
  1. LIPITOR [Suspect]
     Indication: BLOOD CHOLESTEROL INCREASED
     Dosage: 10 MG, 1X/DAY
     Route: 048
     Dates: start: 20051020
  2. LIPITOR [Suspect]
     Dosage: 5 MG THREE TIMES PER WEEK
  3. WELCHOL [Suspect]
     Indication: BLOOD CHOLESTEROL INCREASED
     Dosage: 1250 MG, 2X/DAY
  4. TRICOR [Suspect]
     Dosage: UNK
  5. PREVACID [Concomitant]
     Route: 065
  6. SYNTHROID [Concomitant]
     Route: 065
  7. LANOXIN [Concomitant]
     Route: 065
  8. MONOPRIL [Concomitant]
     Route: 065
  9. FOLIC ACID [Concomitant]
     Route: 065
  10. MAGNESIUM OXIDE [Concomitant]
     Route: 065
  11. ASCORBIC ACID [Concomitant]
     Route: 065
  12. ASPIRIN [Concomitant]
     Route: 065
  13. LOPRESSOR [Concomitant]
     Route: 065
  14. LASIX [Concomitant]
     Route: 065
  15. KLOR-CON [Concomitant]
     Route: 065
  16. AMOXICILLIN [Concomitant]
     Route: 065
  17. COENZYME Q10 [Concomitant]
     Dosage: UNK
  18. METOPROLOL [Concomitant]
     Dosage: UNK
  19. TOPROL-XL [Concomitant]
     Dosage: UNK
  20. ACETYLSALICYLIC ACID [Concomitant]
     Dosage: 81 MG, UNK
  21. LOVAZA [Concomitant]
     Dosage: UNK
  22. CALTRATE [Concomitant]
     Dosage: UNK

REACTIONS (10)
  - ASPARTATE AMINOTRANSFERASE INCREASED [None]
  - BACK PAIN [None]
  - BLOOD CHOLESTEROL INCREASED [None]
  - BLOOD TRIGLYCERIDES INCREASED [None]
  - FLATULENCE [None]
  - HIGH DENSITY LIPOPROTEIN DECREASED [None]
  - LOW DENSITY LIPOPROTEIN INCREASED [None]
  - MYALGIA [None]
  - PAIN [None]
  - WRONG TECHNIQUE IN DRUG USAGE PROCESS [None]
